FAERS Safety Report 25855395 (Version 1)
Quarter: 2025Q3

REPORT INFORMATION
  Report Type: Spontaneous
  Country: US (occurrence: US)
  Receive Date: 20250927
  Receipt Date: 20250927
  Transmission Date: 20251020
  Serious: Yes (Other)
  Sender: SUNOVION
  Company Number: US-SMPA-2025SPA012335

PATIENT
  Age: 78 Year
  Sex: Male

DRUGS (1)
  1. ORGOVYX [Suspect]
     Active Substance: RELUGOLIX
     Indication: Prostate cancer
     Dosage: 120 MG, QD (TAKE ONE TABLET (120 MG) BY MOUTH ONCE DAILY AROUND THE SAME TIME EACH DAY)
     Route: 048

REACTIONS (1)
  - Lumbar vertebral fracture [Unknown]
